FAERS Safety Report 20456396 (Version 1)
Quarter: 2022Q1

REPORT INFORMATION
  Report Type: Spontaneous
  Country: US (occurrence: None)
  Receive Date: 20220210
  Receipt Date: 20220210
  Transmission Date: 20220423
  Serious: No
  Sender: FDA-Public Use
  Company Number: None

PATIENT
  Age: 63 Year
  Sex: Female

DRUGS (1)
  1. CAPECITABINE [Suspect]
     Active Substance: CAPECITABINE
     Indication: Breast cancer
     Dosage: OTHER FREQUENCY : Q12 FOR 14;?
     Route: 048
     Dates: start: 202107, end: 202201

REACTIONS (5)
  - Palmar-plantar erythrodysaesthesia syndrome [None]
  - Skin discolouration [None]
  - Skin exfoliation [None]
  - Platelet count decreased [None]
  - Drug ineffective [None]

NARRATIVE: CASE EVENT DATE: 20211201
